FAERS Safety Report 5290165-4 (Version None)
Quarter: 2007Q2

REPORT INFORMATION
  Report Type: 
  Country: None (occurrence: None)
  Receive Date: 20070402
  Receipt Date: 20070322
  Transmission Date: 20071010
  Serious: Yes (Life-Threatening, Hospitalization)
  Sender: FDA-Public Use
  Company Number: 430015M07USA

PATIENT
  Age: 66 Year
  Sex: Female
  Weight: 52.6 kg

DRUGS (12)
  1. NOVANTRONE [Suspect]
     Indication: ACUTE MYELOID LEUKAEMIA
     Dates: start: 20070221, end: 20070225
  2. ETOPOSIDE [Suspect]
     Dates: start: 20070221, end: 20070225
  3. CYTARABINE [Suspect]
     Dates: start: 20070221, end: 20070225
  4. ACYCLOVIR (ACICLOVIR /00587301/) [Concomitant]
  5. ALLOPURINOL [Concomitant]
  6. CALCIUM CARBONATE (CALCIUM CARBONATE) [Concomitant]
  7. CEFEPIME [Concomitant]
  8. NYSTATIN [Concomitant]
  9. PROTONIX [Concomitant]
  10. SENOKOT (SENNA ALEXANDRINA) [Concomitant]
  11. VORICONAZOLE (VORICONAZOLE) [Concomitant]
  12. TYLENOL (COTYLENOL) [Concomitant]

REACTIONS (14)
  - CARDIAC ARREST [None]
  - CYANOSIS [None]
  - DYSPNOEA [None]
  - FEBRILE NEUTROPENIA [None]
  - FLUID OVERLOAD [None]
  - HAEMOPTYSIS [None]
  - IMMUNE SYSTEM DISORDER [None]
  - LOSS OF CONSCIOUSNESS [None]
  - LUNG INFILTRATION [None]
  - PANCYTOPENIA [None]
  - PULMONARY ALVEOLAR HAEMORRHAGE [None]
  - PULMONARY ARTERIAL PRESSURE INCREASED [None]
  - PULMONARY OEDEMA [None]
  - TORSADE DE POINTES [None]
